FAERS Safety Report 16728818 (Version 22)
Quarter: 2021Q1

REPORT INFORMATION
  Report Type: Spontaneous
  Country: CA (occurrence: CA)
  Receive Date: 20190822
  Receipt Date: 20210326
  Transmission Date: 20210419
  Serious: Yes (Hospitalization, Other)
  Sender: FDA-Public Use
  Company Number: CA-PFIZER INC-2019354320

PATIENT
  Age: 49 Year
  Sex: Male

DRUGS (20)
  1. XELJANZ [Suspect]
     Active Substance: TOFACITINIB CITRATE
     Dosage: 10 MG, 2X/DAY
     Route: 048
     Dates: start: 2020, end: 20201220
  2. XELJANZ [Suspect]
     Active Substance: TOFACITINIB CITRATE
     Dosage: 1 DF, 1X/DAY (MOST PROBABLY ONE 5?MG TABLET)
     Route: 048
     Dates: start: 2019
  3. VALSARTAN HCTZ [Concomitant]
     Active Substance: HYDROCHLOROTHIAZIDE\VALSARTAN
     Dosage: UNK, 1X/DAY
     Route: 048
  4. PERINDOPRIL [Concomitant]
     Active Substance: PERINDOPRIL
     Indication: MYOCARDIAL ISCHAEMIA
     Dosage: 4 MG, DAILY
     Route: 048
     Dates: start: 201908
  5. MAGNESIUM?ROUGIER [Concomitant]
     Active Substance: MAGNESIUM GLUCEPTATE
     Dosage: 30 ML, DAILY
     Route: 048
  6. K?DUR [Concomitant]
     Active Substance: POTASSIUM CHLORIDE
     Dosage: UNK, DAILY
     Route: 048
  7. XELJANZ [Suspect]
     Active Substance: TOFACITINIB CITRATE
     Dosage: 10 MG, 2X/DAY
     Route: 048
     Dates: start: 20190903, end: 2019
  8. PREDNISONE. [Concomitant]
     Active Substance: PREDNISONE
     Dosage: 5 MG, EVERY 2 WEEKS (TAPERED)
     Route: 048
     Dates: start: 201908, end: 2019
  9. ENTYVIO [Concomitant]
     Active Substance: VEDOLIZUMAB
     Dosage: 300 MG, EVERY 4 WEEKS
     Route: 042
  10. BRIMONIDINE/BRINZOLAMIDE [Concomitant]
     Active Substance: BRIMONIDINE TARTRATE\BRINZOLAMIDE
     Dosage: 2 DROP, 2X/DAY (ONE DROP IN BOTH EYES)
     Route: 047
  11. PREDNISONE. [Concomitant]
     Active Substance: PREDNISONE
     Indication: COLITIS ULCERATIVE
     Dosage: 40 MG, DAILY (FOR 1 WEEK THEN TAPER BY 5 MG, EVERY 2 WEEKS)
     Route: 048
  12. OMEPRAZOLE. [Concomitant]
     Active Substance: OMEPRAZOLE
     Dosage: 20 MG, 1X/DAY (IN THE MORNING)
     Route: 048
  13. SOLU?MEDROL [Concomitant]
     Active Substance: METHYLPREDNISOLONE SODIUM SUCCINATE
     Dosage: UNK
     Route: 042
     Dates: start: 2019, end: 20190808
  14. ACETAMINOPHEN. [Concomitant]
     Active Substance: ACETAMINOPHEN
     Dosage: UNK, DAILY 4 TO 6 TABLETS
     Route: 048
  15. ACETYLSALICYLIC ACID ENTERIC COATED [Concomitant]
     Active Substance: ASPIRIN
     Dosage: 80 MG, DAILY
     Route: 048
  16. HCTZ [Concomitant]
     Active Substance: HYDROCHLOROTHIAZIDE
     Dosage: 25 MG, DAILY
     Route: 048
  17. XELJANZ [Suspect]
     Active Substance: TOFACITINIB CITRATE
     Indication: COLITIS ULCERATIVE
     Dosage: 10 MG, 2X/DAY
     Route: 048
     Dates: start: 20190827, end: 2019
  18. XELJANZ [Suspect]
     Active Substance: TOFACITINIB CITRATE
     Dosage: 5 MG, 2X/DAY
     Route: 048
     Dates: end: 2020
  19. ROSUVASTATIN. [Concomitant]
     Active Substance: ROSUVASTATIN
     Indication: MYOCARDIAL ISCHAEMIA
     Dosage: 10 MG, DAILY
     Route: 048
     Dates: start: 201905
  20. BIMATOPROST. [Concomitant]
     Active Substance: BIMATOPROST
     Dosage: 2 DROP, 1X/DAY (ONE DROP IN BOTH EYES AT BEDTIME)
     Route: 047

REACTIONS (17)
  - C-reactive protein increased [Unknown]
  - Acute myocardial infarction [Recovered/Resolved]
  - Pyrexia [Recovered/Resolved]
  - Myocardial ischaemia [Recovered/Resolved]
  - Angina pectoris [Recovered/Resolved]
  - Condition aggravated [Unknown]
  - Nasopharyngitis [Unknown]
  - Haemorrhage [Unknown]
  - Peripheral swelling [Unknown]
  - Decreased appetite [Unknown]
  - Intentional product misuse [Unknown]
  - Dyspnoea [Unknown]
  - Drug ineffective [Unknown]
  - Cardiac failure congestive [Unknown]
  - Cardiac arrest [Unknown]
  - Fatigue [Unknown]
  - Chest pain [Unknown]

NARRATIVE: CASE EVENT DATE: 20190806
